FAERS Safety Report 7430841-8 (Version None)
Quarter: 2011Q2

REPORT INFORMATION
  Report Type: 
  Country: None (occurrence: None)
  Receive Date: 20110421
  Receipt Date: 20110407
  Transmission Date: 20111010
  Serious: Yes (Hospitalization)
  Sender: FDA-Public Use
  Company Number: CH-BAYER-2011-029920

PATIENT
  Sex: Female

DRUGS (7)
  1. ASPIRIN [Suspect]
     Dosage: DAILY DOSE 200 MG
     Route: 048
     Dates: start: 20110224, end: 20110226
  2. FEMOSTON [Concomitant]
  3. CALCIMAGON-D 3 [Concomitant]
  4. MEFENAMIC ACID [Concomitant]
     Dosage: STARTED AFTER 21-FEB
  5. VALTREX [Suspect]
     Dosage: DAILY DOSE 3000 MG
     Route: 048
     Dates: start: 20110214, end: 20110221
  6. PONSTAN [Suspect]
     Dosage: DAILY DOSE 1500 MG
     Route: 048
  7. CETALERG [Concomitant]

REACTIONS (2)
  - PANCREATITIS ACUTE [None]
  - ABDOMINAL PAIN [None]
